FAERS Safety Report 5025858-7 (Version None)
Quarter: 2006Q2

REPORT INFORMATION
  Report Type: 
  Country: None (occurrence: None)
  Receive Date: 20060427
  Receipt Date: 20051027
  Transmission Date: 20061013
  Serious: Yes (Other)
  Sender: FDA-Public Use
  Company Number: 2005139608

PATIENT
  Age: 46 Year
  Sex: Female
  Weight: 90.7194 kg

DRUGS (6)
  1. ZITHROMAX [Suspect]
     Indication: PROPHYLAXIS
     Dosage: 500 MG, INTRAVENOUS
     Route: 042
     Dates: start: 20051006
  2. FENTANYL [Concomitant]
  3. VERSED [Concomitant]
  4. MORPHINE [Concomitant]
  5. LIDOCAINE [Concomitant]
  6. PROPOFOL [Concomitant]

REACTIONS (3)
  - ERYTHEMA [None]
  - PAIN [None]
  - SWELLING [None]
